FAERS Safety Report 8380822-5 (Version None)
Quarter: 2012Q2

REPORT INFORMATION
  Report Type: 
  Country: None (occurrence: None)
  Receive Date: 20120523
  Receipt Date: 20120515
  Transmission Date: 20120825
  Serious: Yes (Death, Hospitalization, Other)
  Sender: FDA-Public Use
  Company Number: PL-CELGENEUS-129-50794-11110990

PATIENT
  Sex: Male

DRUGS (8)
  1. ETAMSYLATE [Concomitant]
     Indication: HAEMORRHAGE PROPHYLAXIS
     Route: 041
     Dates: start: 20111010, end: 20111109
  2. METRONIDAZOLE [Concomitant]
     Indication: STOMATITIS
     Route: 041
     Dates: start: 20111014, end: 20111109
  3. VIDAZA [Suspect]
     Dosage: 100 MILLIGRAM
     Route: 058
  4. FLUCONAZOLE [Concomitant]
     Indication: ANTIFUNGAL PROPHYLAXIS
     Route: 048
     Dates: start: 20110101, end: 20111109
  5. VIDAZA [Suspect]
     Indication: MYELODYSPLASTIC SYNDROME
     Dosage: 75 MILLIGRAM/SQ. METER
     Route: 058
     Dates: start: 20111010, end: 20111017
  6. ACYCLOVIR [Concomitant]
     Indication: STOMATITIS
     Route: 041
     Dates: start: 20111005, end: 20111014
  7. ONDANSETRON HCL [Concomitant]
     Route: 041
     Dates: start: 20111010, end: 20111017
  8. METHYLPREDNISOLONE [Concomitant]
     Indication: STOMATITIS
     Route: 041
     Dates: start: 20111014, end: 20111024

REACTIONS (5)
  - ANAEMIA [None]
  - MYELODYSPLASTIC SYNDROME [None]
  - NEUTROPENIA [None]
  - THROMBOCYTOPENIA [None]
  - PERIPHERAL ISCHAEMIA [None]
